FAERS Safety Report 17373790 (Version 1)
Quarter: 2020Q1

REPORT INFORMATION
  Report Type: Spontaneous
  Country: US (occurrence: US)
  Receive Date: 20200206
  Receipt Date: 20200206
  Transmission Date: 20200409
  Serious: No
  Sender: FDA-Public Use
  Company Number: US-AMGEN INC.-USASP2020018540

PATIENT
  Age: 68 Year
  Sex: Female

DRUGS (1)
  1. AIMOVIG [Suspect]
     Active Substance: ERENUMAB-AOOE
     Indication: MIGRAINE
     Dosage: 70 MILLIGRAM, QMO (28 DAYS)
     Route: 065
     Dates: start: 2019

REACTIONS (3)
  - Migraine [Not Recovered/Not Resolved]
  - Therapeutic product effect incomplete [Unknown]
  - Product dose omission [Unknown]

NARRATIVE: CASE EVENT DATE: 202001
